FAERS Safety Report 25981397 (Version 1)
Quarter: 2025Q4

REPORT INFORMATION
  Report Type: Report from Study
  Country: US (occurrence: US)
  Receive Date: 20251030
  Receipt Date: 20251030
  Transmission Date: 20260117
  Serious: Yes (Other)
  Sender: BAUSCH AND LOMB
  Company Number: US-BAUSCH-BH-2025-019459

PATIENT
  Age: 68 Year
  Sex: Female

DRUGS (1)
  1. SILIQ [Suspect]
     Active Substance: BRODALUMAB
     Indication: Psoriasis
     Dates: start: 202311

REACTIONS (2)
  - Hip arthroplasty [Unknown]
  - Intentional product use issue [Unknown]
